FAERS Safety Report 9365669 (Version 1)
Quarter: 2013Q2

REPORT INFORMATION
  Report Type: Spontaneous
  Country: US (occurrence: None)
  Receive Date: 20130624
  Receipt Date: 20130624
  Transmission Date: 20140414
  Serious: Yes (Other)
  Sender: FDA-Public Use
  Company Number: None

PATIENT
  Age: 18 Year
  Sex: Male
  Weight: 86.18 kg

DRUGS (2)
  1. CIPROFLOXACIN, 500 MG, WEST-WARD [Suspect]
     Indication: URINARY TRACT INFECTION
     Route: 048
  2. CIPRO [Concomitant]

REACTIONS (23)
  - Muscle tightness [None]
  - Tendonitis [None]
  - Arthralgia [None]
  - Vitreous floaters [None]
  - Dry throat [None]
  - Depression [None]
  - Insomnia [None]
  - Nightmare [None]
  - Weight decreased [None]
  - Photopsia [None]
  - Dyspnoea [None]
  - Ageusia [None]
  - Anosmia [None]
  - Impaired healing [None]
  - Contusion [None]
  - Headache [None]
  - Amnesia [None]
  - Confusional state [None]
  - Testicular pain [None]
  - Hearing impaired [None]
  - Faeces discoloured [None]
  - Vision blurred [None]
  - Urine abnormality [None]
